FAERS Safety Report 8476568-5 (Version None)
Quarter: 2012Q2

REPORT INFORMATION
  Report Type: 
  Country: None (occurrence: None)
  Receive Date: 20120628
  Receipt Date: 20120627
  Transmission Date: 20120825
  Serious: Yes (Death)
  Sender: FDA-Public Use
  Company Number: US-CELGENEUS-163-21880-12063679

PATIENT
  Sex: Female

DRUGS (10)
  1. ACCUPRIL [Concomitant]
     Dosage: 20 MILLIGRAM
     Route: 048
  2. SIMVASTATIN [Concomitant]
     Dosage: 5 MILLIGRAM
     Route: 048
  3. REVLIMID [Suspect]
     Dosage: 10 MILLIGRAM
     Route: 048
     Dates: start: 20120423
  4. PRILOSEC [Concomitant]
     Dosage: 20 MILLIGRAM
     Route: 048
  5. ZOCOR [Concomitant]
     Dosage: 5 MILLIGRAM
     Route: 048
  6. CLOTRIMAZOLE TRO [Concomitant]
     Dosage: 10 MILLIGRAM
     Route: 065
  7. CORTISONE ACETATE [Concomitant]
     Dosage: 1 PERCENT
     Route: 061
  8. BETAMETH DIP [Concomitant]
     Route: 061
  9. GLIMEPIRIDE [Concomitant]
     Dosage: 1 MILLIGRAM
     Route: 048
  10. HUMALOG [Concomitant]
     Dosage: 100/ML
     Route: 050

REACTIONS (1)
  - DEATH [None]
